FAERS Safety Report 16919812 (Version 3)
Quarter: 2019Q4

REPORT INFORMATION
  Report Type: Spontaneous
  Country: JP (occurrence: JP)
  Receive Date: 20191015
  Receipt Date: 20191119
  Transmission Date: 20200122
  Serious: Yes (Hospitalization)
  Sender: FDA-Public Use
  Company Number: JP-ROCHE-2436601

PATIENT
  Age: 78 Year
  Sex: Female
  Weight: 57 kg

DRUGS (5)
  1. HERCEPTIN [Suspect]
     Active Substance: TRASTUZUMAB
     Route: 041
     Dates: start: 20190618, end: 20190910
  2. HERCEPTIN [Suspect]
     Active Substance: TRASTUZUMAB
     Indication: BREAST CANCER
     Route: 041
     Dates: start: 20190528, end: 20190528
  3. PERJETA [Suspect]
     Active Substance: PERTUZUMAB
     Indication: BREAST CANCER
     Route: 041
     Dates: start: 20190528, end: 20190528
  4. PERJETA [Suspect]
     Active Substance: PERTUZUMAB
     Route: 041
     Dates: start: 20190618, end: 20190910
  5. ERIBULIN MESILATE [Suspect]
     Active Substance: ERIBULIN
     Indication: BREAST CANCER
     Dosage: TWICE/EVERY 3 WEEKS
     Route: 041
     Dates: start: 20190528, end: 20190917

REACTIONS (1)
  - Interstitial lung disease [Recovering/Resolving]

NARRATIVE: CASE EVENT DATE: 20190918
